FAERS Safety Report 16627920 (Version 1)
Quarter: 2019Q3

REPORT INFORMATION
  Report Type: Spontaneous
  Country: FR (occurrence: FR)
  Receive Date: 20190724
  Receipt Date: 20190724
  Transmission Date: 20191004
  Serious: Yes (Death)
  Sender: FDA-Public Use
  Company Number: FR-PFIZER INC-2019312008

PATIENT
  Age: 25 Year
  Sex: Male

DRUGS (10)
  1. CLINDAMYCIN PHOSPHATE. [Suspect]
     Active Substance: CLINDAMYCIN PHOSPHATE
     Indication: CLOSTRIDIAL INFECTION
     Dosage: 600 MG, UNK
     Route: 042
  2. AMOXICILLIN CLAVULANIC ACID [Suspect]
     Active Substance: AMOXICILLIN\CLAVULANIC ACID
     Indication: CLOSTRIDIAL INFECTION
     Dosage: 2 G, UNK
     Route: 042
  3. AMIKACIN. [Suspect]
     Active Substance: AMIKACIN
     Indication: MUSCLE NECROSIS
  4. NOREPINEPHRINE. [Concomitant]
     Active Substance: NOREPINEPHRINE
     Dosage: 9 MG, UNK
  5. CLINDAMYCIN PHOSPHATE. [Suspect]
     Active Substance: CLINDAMYCIN PHOSPHATE
     Indication: MUSCLE NECROSIS
  6. CLINDAMYCIN PHOSPHATE. [Suspect]
     Active Substance: CLINDAMYCIN PHOSPHATE
     Indication: NECROTISING FASCIITIS
  7. AMIKACIN. [Suspect]
     Active Substance: AMIKACIN
     Indication: NECROTISING FASCIITIS
  8. AMOXICILLIN CLAVULANIC ACID [Suspect]
     Active Substance: AMOXICILLIN\CLAVULANIC ACID
     Indication: MUSCLE NECROSIS
  9. AMOXICILLIN CLAVULANIC ACID [Suspect]
     Active Substance: AMOXICILLIN\CLAVULANIC ACID
     Indication: NECROTISING FASCIITIS
  10. AMIKACIN. [Suspect]
     Active Substance: AMIKACIN
     Indication: CLOSTRIDIAL INFECTION
     Dosage: UNK

REACTIONS (1)
  - Drug ineffective [Fatal]
